FAERS Safety Report 16750959 (Version 2)
Quarter: 2019Q4

REPORT INFORMATION
  Report Type: Spontaneous
  Country: JP (occurrence: JP)
  Receive Date: 20190828
  Receipt Date: 20191211
  Transmission Date: 20200122
  Serious: Yes (Death, Hospitalization)
  Sender: FDA-Public Use
  Company Number: JP-ASTRAZENECA-2019SF21614

PATIENT
  Age: 33448 Day
  Sex: Female
  Weight: 49 kg

DRUGS (9)
  1. BETAHISTINE MESILATE [Concomitant]
     Active Substance: BETAHISTINE MESILATE
     Route: 048
  2. LOXONIN [Concomitant]
     Active Substance: LOXOPROFEN SODIUM
     Dosage: DOSE UNKNOWN
     Route: 065
  3. BELSOMRA [Concomitant]
     Active Substance: SUVOREXANT
     Route: 065
  4. EDIROL [Concomitant]
     Active Substance: ELDECALCITOL
     Route: 048
  5. TAGRISSO [Suspect]
     Active Substance: OSIMERTINIB
     Indication: NON-SMALL CELL LUNG CANCER
     Route: 048
     Dates: start: 20190725, end: 20190801
  6. BISONO [Concomitant]
     Active Substance: BISOPROLOL
     Route: 062
  7. BERIZYM [Concomitant]
     Active Substance: CELLULASE\DIASTASE\LIPASE
     Dosage: EVERY DAY
     Route: 048
  8. TEPRENONE [Concomitant]
     Active Substance: TEPRENONE
     Dosage: THREE TIMES A DAY
     Route: 048
  9. FEBURIC [Concomitant]
     Active Substance: FEBUXOSTAT
     Dosage: 20.0MG UNKNOWN
     Route: 065

REACTIONS (3)
  - Renal disorder [Recovered/Resolved]
  - Liver disorder [Recovered/Resolved]
  - Malignant neoplasm progression [Fatal]

NARRATIVE: CASE EVENT DATE: 20190731
